FAERS Safety Report 5206970-6 (Version None)
Quarter: 2007Q1

REPORT INFORMATION
  Report Type: 
  Country: None (occurrence: None)
  Receive Date: 20070110
  Receipt Date: 20061228
  Transmission Date: 20070707
  Serious: Yes (Death)
  Sender: FDA-Public Use
  Company Number: 20073414

PATIENT
  Sex: Female

DRUGS (9)
  1. LIORESAL [Suspect]
     Indication: MUSCLE SPASTICITY
     Dosage: MCG, DAILY, INTRATHECAL
     Route: 037
  2. HYDROMORPHONE HCL [Concomitant]
  3. BUPIVACAINE [Concomitant]
  4. CLONIDINE [Concomitant]
  5. FENTANYL TRANSDERMAL SYSTEM [Concomitant]
  6. HYDROMORPHONE HCL [Concomitant]
  7. BUPIVACAINE [Concomitant]
  8. CLONIDINE [Concomitant]
  9. FENTANYL TRANSDERMAL SYSTEM [Concomitant]

REACTIONS (1)
  - MALAISE [None]
